FAERS Safety Report 15110967 (Version 2)
Quarter: 2018Q3

REPORT INFORMATION
  Report Type: Report from Study
  Country: US (occurrence: US)
  Receive Date: 20180705
  Receipt Date: 20180823
  Transmission Date: 20181010
  Serious: Yes (Hospitalization, Other)
  Sender: FDA-Public Use
  Company Number: US-JNJFOC-20180438502

PATIENT
  Sex: Female

DRUGS (1)
  1. STELARA [Suspect]
     Active Substance: USTEKINUMAB
     Indication: CROHN^S DISEASE
     Route: 058
     Dates: start: 20171120

REACTIONS (4)
  - Wound infection [Recovered/Resolved]
  - Intestinal obstruction [Not Recovered/Not Resolved]
  - Impaired healing [Recovered/Resolved]
  - Abdominal operation [Unknown]

NARRATIVE: CASE EVENT DATE: 2018
